FAERS Safety Report 14775281 (Version 1)
Quarter: 2018Q2

REPORT INFORMATION
  Report Type: Report from Study
  Country: BE (occurrence: BE)
  Receive Date: 20180418
  Receipt Date: 20180418
  Transmission Date: 20180711
  Serious: Yes (Hospitalization)
  Sender: FDA-Public Use
  Company Number: BE-CELGENEUS-BEL-20180208216

PATIENT
  Age: 78 Year
  Sex: Female
  Weight: 62.5 kg

DRUGS (17)
  1. AZACITIDINE. [Suspect]
     Active Substance: AZACITIDINE
     Indication: ACUTE MYELOID LEUKAEMIA
     Dosage: 75 MICROGRAM/SQ. METER
     Route: 058
  2. CLOPIDOGREL [Concomitant]
     Active Substance: CLOPIDOGREL BISULFATE
     Indication: ACUTE MYOCARDIAL INFARCTION
     Dosage: 75 MILLIGRAM
     Route: 048
     Dates: start: 1990
  3. DAFALGAN [Concomitant]
     Active Substance: ACETAMINOPHEN
     Indication: HEADACHE
     Route: 048
     Dates: start: 20180130
  4. ALIZAPRIDE [Concomitant]
     Active Substance: ALIZAPRIDE
     Indication: VOMITING
  5. DEXTROSE AND SODIUM CHLORIDE INJECTION [Concomitant]
     Indication: PROPHYLAXIS
     Route: 041
     Dates: start: 20180115, end: 20180119
  6. COVERSYL [Concomitant]
     Active Substance: PERINDOPRIL
     Indication: HYPERTENSION
     Dosage: 5 MILLIGRAM
     Route: 048
     Dates: start: 1990
  7. REDOMEX [Concomitant]
     Active Substance: AMITRIPTYLINE HYDROCHLORIDE
     Indication: TENSION HEADACHE
     Dosage: 50 MILLIGRAM
     Route: 048
     Dates: start: 1990, end: 20180217
  8. ALPRAZOLAM. [Concomitant]
     Active Substance: ALPRAZOLAM
     Indication: INSOMNIA
     Dosage: .25 MILLIGRAM
     Route: 048
     Dates: start: 20180108, end: 20180123
  9. ATORVASTATIN [Concomitant]
     Active Substance: ATORVASTATIN
     Indication: HYPERCHOLESTEROLAEMIA
     Dosage: 40 MILLIGRAM
     Route: 048
  10. ASAFLOW [Concomitant]
     Active Substance: ASPIRIN
     Indication: ACUTE MYOCARDIAL INFARCTION
     Dosage: 80 MILLIEQUIVALENTS
     Route: 048
  11. BISOPROLOL [Concomitant]
     Active Substance: BISOPROLOL
     Indication: HYPERTENSION
     Dosage: 2.5 MILLIGRAM
     Route: 048
     Dates: start: 1990
  12. PANTOMED [Concomitant]
     Indication: PROPHYLAXIS
     Dosage: 20 MILLIGRAM
     Route: 048
     Dates: start: 1990
  13. ALPRAZOLAM. [Concomitant]
     Active Substance: ALPRAZOLAM
     Dosage: .25 MILLIGRAM
     Route: 048
     Dates: start: 20180124
  14. ONDANSETRON [Concomitant]
     Active Substance: ONDANSETRON
     Indication: PROPHYLAXIS OF NAUSEA AND VOMITING
     Dosage: 8 MILLIGRAM
     Route: 048
     Dates: start: 20180213, end: 20180219
  15. ALIZAPRIDE [Concomitant]
     Active Substance: ALIZAPRIDE
     Indication: NAUSEA
     Route: 065
     Dates: start: 2018
  16. ALLOPURINOL. [Concomitant]
     Active Substance: ALLOPURINOL
     Indication: PROPHYLAXIS
     Dosage: 300 MILLIGRAM
     Route: 048
     Dates: start: 20180115
  17. VENETOCLAX. [Concomitant]
     Active Substance: VENETOCLAX
     Indication: PRODUCT USED FOR UNKNOWN INDICATION
     Route: 065

REACTIONS (1)
  - Hypertrophic anal papilla [Recovered/Resolved]

NARRATIVE: CASE EVENT DATE: 20180217
